FAERS Safety Report 24108565 (Version 3)
Quarter: 2025Q2

REPORT INFORMATION
  Report Type: Spontaneous
  Country: CA (occurrence: CA)
  Receive Date: 20240718
  Receipt Date: 20250512
  Transmission Date: 20250716
  Serious: Yes (Death, Life-Threatening, Hospitalization, Disabling, Other)
  Sender: SANOFI AVENTIS
  Company Number: CA-SA-SAC20240715000182

PATIENT
  Age: 48 Year
  Sex: Female
  Weight: 68 kg

DRUGS (60)
  1. ARAVA [Suspect]
     Active Substance: LEFLUNOMIDE
     Indication: Rheumatoid arthritis
     Route: 048
  2. ARAVA [Suspect]
     Active Substance: LEFLUNOMIDE
     Dosage: 1 MG, QD
  3. ARAVA [Suspect]
     Active Substance: LEFLUNOMIDE
     Dosage: 10 MG, QD
     Route: 048
  4. ARAVA [Suspect]
     Active Substance: LEFLUNOMIDE
     Route: 005
  5. ALENDRONIC ACID [Suspect]
     Active Substance: ALENDRONIC ACID
     Indication: Rheumatoid arthritis
     Route: 048
  6. ALENDRONIC ACID [Suspect]
     Active Substance: ALENDRONIC ACID
     Route: 016
  7. BETAMETHASONE VALERATE [Suspect]
     Active Substance: BETAMETHASONE VALERATE
     Indication: Rheumatoid arthritis
     Route: 049
  8. BETAMETHASONE VALERATE [Suspect]
     Active Substance: BETAMETHASONE VALERATE
     Route: 065
  9. CETIRIZINE HYDROCHLORIDE [Suspect]
     Active Substance: CETIRIZINE HYDROCHLORIDE
     Indication: Rheumatoid arthritis
     Route: 048
  10. CETIRIZINE HYDROCHLORIDE [Suspect]
     Active Substance: CETIRIZINE HYDROCHLORIDE
     Indication: Off label use
     Dosage: 10 MG, QD
     Route: 048
  11. CETIRIZINE HYDROCHLORIDE [Suspect]
     Active Substance: CETIRIZINE HYDROCHLORIDE
     Route: 064
  12. CETIRIZINE HYDROCHLORIDE [Suspect]
     Active Substance: CETIRIZINE HYDROCHLORIDE
     Route: 067
  13. CHLORHEXIDINE ACETATE [Suspect]
     Active Substance: CHLORHEXIDINE ACETATE
     Indication: Product used for unknown indication
     Route: 065
  14. DESOXIMETASONE [Suspect]
     Active Substance: DESOXIMETASONE
     Indication: Rheumatoid arthritis
     Dosage: 25 MG, QD
     Route: 061
  15. DESOXIMETASONE [Suspect]
     Active Substance: DESOXIMETASONE
     Route: 058
  16. DESOXIMETASONE [Suspect]
     Active Substance: DESOXIMETASONE
     Dosage: 25 MG, QD
     Route: 048
  17. DESOXIMETASONE [Suspect]
     Active Substance: DESOXIMETASONE
     Route: 067
  18. DESOXIMETASONE [Suspect]
     Active Substance: DESOXIMETASONE
     Route: 064
  19. DICLOFENAC POTASSIUM [Suspect]
     Active Substance: DICLOFENAC POTASSIUM
     Indication: Product used for unknown indication
     Route: 058
  20. DICLOFENAC SODIUM [Suspect]
     Active Substance: DICLOFENAC SODIUM
     Indication: Product used for unknown indication
     Dosage: 50 MG, QD
     Route: 064
  21. DIPHENHYDRAMINE HYDROCHLORIDE\ZINC OXIDE [Suspect]
     Active Substance: DIPHENHYDRAMINE HYDROCHLORIDE\ZINC OXIDE
     Indication: Product used for unknown indication
     Route: 065
  22. FOLIC ACID [Suspect]
     Active Substance: FOLIC ACID
     Indication: Rheumatoid arthritis
     Route: 048
  23. FOLIC ACID [Suspect]
     Active Substance: FOLIC ACID
     Route: 048
  24. FOLIC ACID [Suspect]
     Active Substance: FOLIC ACID
     Route: 048
  25. FOLIC ACID [Suspect]
     Active Substance: FOLIC ACID
     Route: 058
  26. HYDROXYCHLOROQUINE [Suspect]
     Active Substance: HYDROXYCHLOROQUINE
     Indication: Rheumatoid arthritis
     Route: 048
  27. HYDROXYCHLOROQUINE [Suspect]
     Active Substance: HYDROXYCHLOROQUINE
     Route: 064
  28. HYDROXYCHLOROQUINE [Suspect]
     Active Substance: HYDROXYCHLOROQUINE
     Route: 005
  29. IBUPROFEN [Suspect]
     Active Substance: IBUPROFEN
     Indication: Product used for unknown indication
  30. KEVZARA [Suspect]
     Active Substance: SARILUMAB
     Indication: Rheumatoid arthritis
  31. METHOTREXATE [Suspect]
     Active Substance: METHOTREXATE
     Indication: Product used for unknown indication
     Dosage: 1 MG, QD
     Route: 065
  32. METHOTREXATE [Suspect]
     Active Substance: METHOTREXATE
     Route: 058
  33. METHOTREXATE [Suspect]
     Active Substance: METHOTREXATE
     Route: 013
  34. METHOTREXATE [Suspect]
     Active Substance: METHOTREXATE
     Dosage: 500 MG, QD
     Route: 048
  35. METHOTREXATE [Suspect]
     Active Substance: METHOTREXATE
     Route: 048
  36. METHOTREXATE [Suspect]
     Active Substance: METHOTREXATE
     Route: 042
  37. METHOTREXATE [Suspect]
     Active Substance: METHOTREXATE
     Route: 064
  38. METHOTREXATE [Suspect]
     Active Substance: METHOTREXATE
     Route: 058
  39. METHYLPREDNISOLONE SODIUM SUCCINATE [Suspect]
     Active Substance: METHYLPREDNISOLONE SODIUM SUCCINATE
     Indication: Product used for unknown indication
     Route: 064
  40. NICOTINAMIDE [Suspect]
     Active Substance: NIACINAMIDE
     Indication: Product used for unknown indication
  41. PANTOPRAZOLE [Suspect]
     Active Substance: PANTOPRAZOLE
     Indication: Dyspepsia
     Route: 048
  42. PREDNISONE [Suspect]
     Active Substance: PREDNISONE
     Indication: Rheumatoid arthritis
     Route: 042
  43. PREDNISONE [Suspect]
     Active Substance: PREDNISONE
     Indication: Condition aggravated
     Route: 016
  44. PREDNISONE [Suspect]
     Active Substance: PREDNISONE
     Route: 048
  45. PREDNISONE [Suspect]
     Active Substance: PREDNISONE
     Route: 065
  46. PREDNISONE [Suspect]
     Active Substance: PREDNISONE
     Route: 061
  47. PREDNISONE [Suspect]
     Active Substance: PREDNISONE
     Route: 064
  48. PREDNISONE [Suspect]
     Active Substance: PREDNISONE
     Route: 048
  49. PREDNISONE [Suspect]
     Active Substance: PREDNISONE
     Route: 048
  50. PREDNISONE [Suspect]
     Active Substance: PREDNISONE
     Route: 048
  51. PREDNISONE [Suspect]
     Active Substance: PREDNISONE
     Route: 064
  52. PSEUDOEPHEDRINE HYDROCHLORIDE [Suspect]
     Active Substance: PSEUDOEPHEDRINE HYDROCHLORIDE
     Indication: Rheumatoid arthritis
     Route: 048
  53. PSEUDOEPHEDRINE HYDROCHLORIDE [Suspect]
     Active Substance: PSEUDOEPHEDRINE HYDROCHLORIDE
     Route: 064
  54. SULFASALAZINE [Suspect]
     Active Substance: SULFASALAZINE
     Indication: Rheumatoid arthritis
     Dosage: 1000 MG, QD
     Route: 048
  55. SULFASALAZINE [Suspect]
     Active Substance: SULFASALAZINE
     Route: 048
  56. SULFASALAZINE [Suspect]
     Active Substance: SULFASALAZINE
     Dosage: 500 MG, QD
     Route: 048
  57. SULFASALAZINE [Suspect]
     Active Substance: SULFASALAZINE
     Route: 065
  58. SULFASALAZINE [Suspect]
     Active Substance: SULFASALAZINE
     Route: 048
  59. SULFASALAZINE [Suspect]
     Active Substance: SULFASALAZINE
     Dosage: 4 MG, QD
     Route: 048
  60. SULFASALAZINE [Suspect]
     Active Substance: SULFASALAZINE
     Dosage: 1 MG, QD
     Route: 048

REACTIONS (18)
  - Pemphigus [Fatal]
  - Pneumonia [Fatal]
  - Pulmonary fibrosis [Fatal]
  - Retinitis [Fatal]
  - Rheumatic fever [Fatal]
  - Rheumatoid arthritis [Fatal]
  - Seronegative arthritis [Fatal]
  - Systemic lupus erythematosus [Fatal]
  - Type 2 diabetes mellitus [Fatal]
  - Autoimmune disorder [Fatal]
  - Breast cancer stage II [Fatal]
  - Deep vein thrombosis postoperative [Fatal]
  - Delirium [Fatal]
  - Dislocation of vertebra [Fatal]
  - Duodenal ulcer perforation [Fatal]
  - Hepatic cirrhosis [Fatal]
  - Prescribed underdose [Fatal]
  - Therapeutic response decreased [Fatal]
